FAERS Safety Report 5800679-3 (Version None)
Quarter: 2008Q3

REPORT INFORMATION
  Report Type: 
  Country: None (occurrence: None)
  Receive Date: 20080703
  Receipt Date: 20080625
  Transmission Date: 20090109
  Serious: Yes (Other)
  Sender: FDA-Public Use
  Company Number: JP-ROCHE-566442

PATIENT
  Sex: Male
  Weight: 72 kg

DRUGS (6)
  1. PEGASYS [Suspect]
     Route: 058
     Dates: start: 20080412, end: 20080426
  2. PEGASYS [Suspect]
     Route: 058
     Dates: start: 20080524, end: 20080524
  3. COPEGUS [Suspect]
     Route: 048
     Dates: start: 20080412, end: 20080418
  4. COPEGUS [Suspect]
     Route: 048
     Dates: start: 20080426, end: 20080502
  5. COPEGUS [Suspect]
     Route: 048
     Dates: start: 20080524, end: 20080530
  6. AMLODIPINE [Concomitant]
     Route: 048
     Dates: start: 20080202

REACTIONS (2)
  - EOSINOPHILIA [None]
  - NEUTROPENIA [None]
